FAERS Safety Report 6029263-6 (Version None)
Quarter: 2009Q1

REPORT INFORMATION
  Report Type: 
  Country: None (occurrence: None)
  Receive Date: 20090106
  Receipt Date: 20090105
  Transmission Date: 20090719
  Serious: Yes (Death)
  Sender: FDA-Public Use
  Company Number: AU-B.I. PHARMACEUTICALS,INC./RIDGEFIELD-2008-BP-17979AU

PATIENT
  Sex: Female
  Weight: 68 kg

DRUGS (5)
  1. SIFROL [Suspect]
     Indication: PROGRESSIVE SUPRANUCLEAR PALSY
     Dosage: 4.5MG
     Route: 048
     Dates: start: 20080825, end: 20081128
  2. CABASER [Concomitant]
     Indication: PROGRESSIVE SUPRANUCLEAR PALSY
     Dates: end: 20080801
  3. PERINDOPRIL ERBUMINE [Concomitant]
     Dosage: 2.5MG
     Route: 048
  4. EFEXOR SR [Concomitant]
     Dosage: 75MG
     Route: 048
  5. SINEMET [Concomitant]
     Dosage: 100MG/25MG
     Route: 048

REACTIONS (1)
  - DEATH [None]
